FAERS Safety Report 5669755-2 (Version None)
Quarter: 2008Q1

REPORT INFORMATION
  Report Type: 
  Country: None (occurrence: None)
  Receive Date: 20080313
  Receipt Date: 20080313
  Transmission Date: 20080703
  Serious: Yes (Hospitalization)
  Sender: FDA-Public Use
  Company Number: None

PATIENT
  Sex: Male
  Weight: 108 kg

DRUGS (6)
  1. SUNITINIB [Suspect]
     Indication: RENAL CANCER METASTATIC
     Dosage: 50 MG DAILY ORAL
     Route: 048
     Dates: start: 20080222, end: 20080308
  2. PEPCID [Concomitant]
  3. LOPERAMIDE HCL [Concomitant]
  4. SYNTHROID [Concomitant]
  5. COMPAZINE [Concomitant]
  6. KYTRIL [Concomitant]

REACTIONS (1)
  - DIZZINESS [None]
